FAERS Safety Report 4262916-9 (Version None)
Quarter: 2004Q1

REPORT INFORMATION
  Report Type: 
  Country: None (occurrence: None)
  Receive Date: 20040102
  Receipt Date: 20040102
  Transmission Date: 20041129
  Serious: Yes (Hospitalization)
  Sender: FDA-Public Use
  Company Number: None

PATIENT
  Age: 46 Year
  Sex: Female
  Weight: 83.9154 kg

DRUGS (1)
  1. EFFEXOR [Suspect]
     Indication: DEPRESSION
     Dosage: 75 MG 3X DAY ORAL
     Route: 048
     Dates: start: 20030724, end: 20031201

REACTIONS (9)
  - ANGER [None]
  - ARRHYTHMIA [None]
  - CONVULSION [None]
  - DRUG WITHDRAWAL SYNDROME [None]
  - LOSS OF CONSCIOUSNESS [None]
  - PAIN [None]
  - SUICIDAL IDEATION [None]
  - TACHYCARDIA [None]
  - VISION BLURRED [None]
